FAERS Safety Report 5615292-0 (Version None)
Quarter: 2008Q1

REPORT INFORMATION
  Report Type: 
  Country: None (occurrence: None)
  Receive Date: 20080206
  Receipt Date: 20080129
  Transmission Date: 20080703
  Serious: Yes (Other)
  Sender: FDA-Public Use
  Company Number: PHEH2008US01422

PATIENT
  Sex: Male

DRUGS (2)
  1. ELIDEL [Suspect]
  2. PROTOPIC [Suspect]

REACTIONS (1)
  - MALIGNANT MELANOMA [None]
